FAERS Safety Report 12418989 (Version 1)
Quarter: 2016Q2

REPORT INFORMATION
  Report Type: Spontaneous
  Country: DK (occurrence: DK)
  Receive Date: 20160531
  Receipt Date: 20160531
  Transmission Date: 20160815
  Serious: Yes (Hospitalization, Other)
  Sender: FDA-Public Use
  Company Number: DK-IPSEN BIOPHARMACEUTICALS, INC.-2016-04518

PATIENT
  Age: 76 Year
  Sex: Male

DRUGS (8)
  1. IPSTYL AUTOGEL 120MG [Suspect]
     Active Substance: LANREOTIDE ACETATE
     Indication: NEUROENDOCRINE TUMOUR
     Dosage: 120 MG
     Route: 058
     Dates: start: 20151204, end: 20160126
  2. FURIX [Concomitant]
     Active Substance: FUROSEMIDE
     Indication: ASCITES
  3. TRADOLAN [Concomitant]
     Active Substance: TRAMADOL
     Indication: PAIN
  4. ALLOPURINOL ^DAK^ [Concomitant]
     Indication: GOUTY ARTHRITIS
  5. ALDACTONE [Concomitant]
     Active Substance: SPIRONOLACTONE
     Indication: ASCITES
  6. OCTREOTID [Concomitant]
     Indication: NEUROENDOCRINE TUMOUR
  7. PANTOPRAZOLE [Concomitant]
     Active Substance: PANTOPRAZOLE SODIUM
     Indication: GASTRIC PH DECREASED
  8. CREON [Concomitant]
     Active Substance: PANCRELIPASE AMYLASE\PANCRELIPASE LIPASE\PANCRELIPASE PROTEASE
     Indication: PANCREATIC INSUFFICIENCY

REACTIONS (5)
  - Jaundice [Recovered/Resolved]
  - Mesenteric venous occlusion [Unknown]
  - Faeces pale [Recovered/Resolved]
  - Cholestasis [Recovered/Resolved]
  - Inappropriate schedule of drug administration [Unknown]

NARRATIVE: CASE EVENT DATE: 20160119
